FAERS Safety Report 22185133 (Version 2)
Quarter: 2023Q2

REPORT INFORMATION
  Report Type: Report from Study
  Country: SE (occurrence: SE)
  Receive Date: 20230407
  Receipt Date: 20230425
  Transmission Date: 20230722
  Serious: Yes (Life-Threatening)
  Sender: FDA-Public Use
  Company Number: SE-002147023-NVSC2023SE079413

PATIENT
  Age: 76 Year
  Sex: Female
  Weight: 56.1 kg

DRUGS (3)
  1. LUTATHERA [Suspect]
     Active Substance: LUTETIUM OXODOTREOTIDE LU-177
     Indication: Small intestine neuroendocrine tumour
     Dosage: 7400 MBQ
     Route: 042
     Dates: start: 20230308
  2. LUTATHERA [Suspect]
     Active Substance: LUTETIUM OXODOTREOTIDE LU-177
     Indication: Metastases to liver
  3. LUTATHERA [Suspect]
     Active Substance: LUTETIUM OXODOTREOTIDE LU-177
     Indication: Metastases to lymph nodes

REACTIONS (1)
  - Carcinoid crisis [Recovered/Resolved]

NARRATIVE: CASE EVENT DATE: 20230308
